FAERS Safety Report 12763762 (Version 1)
Quarter: 2016Q3

REPORT INFORMATION
  Report Type: Spontaneous
  Country: US (occurrence: US)
  Receive Date: 20160915
  Receipt Date: 20160915
  Transmission Date: 20161109
  Serious: No
  Sender: FDA-Public Use
  Company Number: None

PATIENT
  Age: 66 Year
  Sex: Female

DRUGS (1)
  1. TIKOSYN [Suspect]
     Active Substance: DOFETILIDE
     Indication: PRODUCT USED FOR UNKNOWN INDICATION
     Route: 048
     Dates: start: 20160601, end: 20160702

REACTIONS (5)
  - Eye swelling [None]
  - Therapy cessation [None]
  - Bronchospasm [None]
  - Cough [None]
  - Pharyngeal oedema [None]

NARRATIVE: CASE EVENT DATE: 20160702
